FAERS Safety Report 18229520 (Version 1)
Quarter: 2020Q3

REPORT INFORMATION
  Report Type: Spontaneous
  Country: FR (occurrence: FR)
  Receive Date: 20200903
  Receipt Date: 20200903
  Transmission Date: 20201103
  Serious: Yes (Congenital Anomaly)
  Sender: FDA-Public Use
  Company Number: FR-ALLERGAN-2033351US

PATIENT
  Sex: Male

DRUGS (1)
  1. ESCITALOPRAM OXALATE ? BP [Suspect]
     Active Substance: ESCITALOPRAM OXALATE
     Indication: EXPOSURE DURING PREGNANCY
     Dosage: UNK
     Route: 064
     Dates: start: 201003, end: 202006

REACTIONS (7)
  - Growth retardation [Recovering/Resolving]
  - Learning disorder [Not Recovered/Not Resolved]
  - Deafness unilateral [Recovering/Resolving]
  - Foetal exposure during pregnancy [Unknown]
  - Language disorder [Not Recovered/Not Resolved]
  - Blood growth hormone decreased [Unknown]
  - Dysgraphia [Not Recovered/Not Resolved]

NARRATIVE: CASE EVENT DATE: 2012
